FAERS Safety Report 10049029 (Version 1)
Quarter: 2014Q1

REPORT INFORMATION
  Report Type: Spontaneous
  Country: US (occurrence: US)
  Receive Date: 20140331
  Receipt Date: 20140331
  Transmission Date: 20141002
  Serious: Yes (Other)
  Sender: FDA-Public Use
  Company Number: US-ASTRAZENECA-2014SE20505

PATIENT
  Age: 65 Year
  Sex: Female
  Weight: 72.6 kg

DRUGS (6)
  1. CRESTOR [Suspect]
     Indication: BLOOD CHOLESTEROL
     Route: 048
  2. CRESTOR [Suspect]
     Indication: BLOOD CHOLESTEROL
     Route: 048
     Dates: end: 201402
  3. XARELTO [Concomitant]
  4. KIDNEY PILL [Concomitant]
  5. MEDICINE FOR HER THYROID [Concomitant]
  6. MEDICINE FOR BLOOD PRESSURE [Concomitant]

REACTIONS (7)
  - Epistaxis [Unknown]
  - Myocardial infarction [Unknown]
  - Gait disturbance [Unknown]
  - Renal disorder [Unknown]
  - Hypertension [Unknown]
  - Pain in extremity [Unknown]
  - Therapy cessation [Unknown]
